FAERS Safety Report 7084628-9 (Version None)
Quarter: 2010Q4

REPORT INFORMATION
  Report Type: 
  Country: None (occurrence: None)
  Receive Date: 20101104
  Receipt Date: 20101025
  Transmission Date: 20110411
  Serious: Yes (Other)
  Sender: FDA-Public Use
  Company Number: PHHY2010DE58323

PATIENT
  Sex: Female
  Weight: 70 kg

DRUGS (15)
  1. RASILEZ [Suspect]
     Indication: HYPERTENSION
     Dosage: UNK
     Dates: start: 20090101
  2. RASILEZ [Suspect]
     Dosage: 1 DF, QD
     Dates: start: 20100809, end: 20100823
  3. BISOPROLOL [Concomitant]
     Indication: HYPERTENSION
     Dosage: 1 DF, BID
     Route: 048
  4. BLOPRESS [Concomitant]
     Indication: HYPERTENSION
     Dosage: 1 DF, QD
     Route: 048
  5. CARMEN [Concomitant]
     Indication: HYPERTENSION
     Dosage: 1 DF, BID
     Route: 048
  6. TORASEMIDE [Concomitant]
     Indication: HYPERTENSION
     Dosage: UNK
     Route: 048
  7. PLAVIX [Concomitant]
     Dosage: 1 DF, QD
     Route: 048
  8. ASPIRIN [Concomitant]
     Dosage: 1 DF, BID
     Route: 048
  9. SIMVASTATIN [Concomitant]
     Dosage: 1 DF, QD
     Route: 048
  10. LEVOTHYROXINE [Concomitant]
     Dosage: 1 DF, QD
     Route: 048
  11. RANITIDINE [Concomitant]
     Dosage: 1 DF, QD
     Route: 048
  12. PREDNISOLON [Concomitant]
     Dosage: 1 DF, QD
     Route: 048
  13. LORMETAZEPAM [Concomitant]
     Dosage: 1 DF, QD
     Route: 048
  14. FOSAVANCE [Concomitant]
     Dosage: 1 DF, QD
     Route: 048
  15. INSULIN NOVO [Concomitant]
     Dosage: UNK
     Route: 048

REACTIONS (2)
  - ABDOMINAL DISCOMFORT [None]
  - ABDOMINAL PAIN UPPER [None]
